FAERS Safety Report 13860823 (Version 1)
Quarter: 2017Q3

REPORT INFORMATION
  Report Type: Spontaneous
  Country: JP (occurrence: JP)
  Receive Date: 20170811
  Receipt Date: 20170811
  Transmission Date: 20171127
  Serious: Yes (Other)
  Sender: FDA-Public Use
  Company Number: JP-BAYER-2017-149271

PATIENT
  Age: 64 Year
  Sex: Male

DRUGS (3)
  1. PRASUGREL. [Interacting]
     Active Substance: PRASUGREL
     Indication: PERCUTANEOUS CORONARY INTERVENTION
  2. ACETYLSALICYLIC ACID({=100 MG) [Suspect]
     Active Substance: ASPIRIN
     Indication: PERCUTANEOUS CORONARY INTERVENTION
  3. HEPARIN [Interacting]
     Active Substance: HEPARIN SODIUM
     Indication: PERCUTANEOUS CORONARY INTERVENTION
     Route: 042

REACTIONS (5)
  - Myocardial haemorrhage [None]
  - Drug administration error [None]
  - Labelled drug-drug interaction medication error [None]
  - Cardiac tamponade [None]
  - Pericardial haemorrhage [None]
